FAERS Safety Report 15149794 (Version 1)
Quarter: 2018Q4

REPORT INFORMATION
  Report Type: Spontaneous
  Country: FR (occurrence: FR)
  Receive Date: 20180716
  Receipt Date: 20180716
  Transmission Date: 20190204
  Serious: Yes (Other)
  Sender: FDA-Public Use
  Company Number: FR-B. BRAUN MEDICAL INC.-2052126

PATIENT
  Age: 39 Year
  Sex: Female

DRUGS (2)
  1. METRONIDAZOLE INJECTION USP (5 MG/ML) IN PAB? PLASTIC CONTAINER (NDA 0 [Suspect]
     Active Substance: METRONIDAZOLE
     Indication: POST PROCEDURAL INFECTION
     Dates: start: 20180131, end: 20180202
  2. OFLOXACINE MYLAN [Suspect]
     Active Substance: OFLOXACIN
     Dates: start: 20180131, end: 20180202

REACTIONS (1)
  - Skin reaction [Recovered/Resolved]
